FAERS Safety Report 7828567-1 (Version None)
Quarter: 2011Q4

REPORT INFORMATION
  Report Type: 
  Country: None (occurrence: None)
  Receive Date: 20111020
  Receipt Date: 20111020
  Transmission Date: 20120403
  Serious: Yes (Hospitalization, Other)
  Sender: FDA-Public Use
  Company Number: None

PATIENT
  Age: 57 Year
  Sex: Female
  Weight: 54.431 kg

DRUGS (1)
  1. QUETIAPINE [Suspect]
     Indication: BIPOLAR DISORDER
     Dosage: 300 MG PO
     Route: 048
     Dates: start: 20100608, end: 20110831

REACTIONS (1)
  - HEPATIC ENZYME INCREASED [None]
